FAERS Safety Report 4924032-X (Version None)
Quarter: 2006Q1

REPORT INFORMATION
  Report Type: 
  Country: None (occurrence: None)
  Receive Date: 20060221
  Receipt Date: 20060208
  Transmission Date: 20060701
  Serious: Yes (Other)
  Sender: FDA-Public Use
  Company Number: 2006019637

PATIENT
  Age: 19 Year
  Sex: Male
  Weight: 68.0396 kg

DRUGS (1)
  1. UNISOM [Suspect]
     Indication: SLEEP DISORDER
     Dosage: 8-12 TABLETS ONE TIME; ORAL
     Route: 048
     Dates: start: 20060208, end: 20060208

REACTIONS (2)
  - OVERDOSE [None]
  - SOMNOLENCE [None]
